FAERS Safety Report 5160580-8 (Version None)
Quarter: 2006Q4

REPORT INFORMATION
  Report Type: 
  Country: None (occurrence: None)
  Receive Date: 20061129
  Receipt Date: 20061123
  Transmission Date: 20070319
  Serious: Yes (Hospitalization)
  Sender: FDA-Public Use
  Company Number: NZ-MERCK-0611NZL00021

PATIENT
  Age: 74 Year
  Sex: Female

DRUGS (2)
  1. ZOCOR [Suspect]
     Indication: BLOOD CHOLESTEROL INCREASED
     Route: 048
     Dates: start: 20050101, end: 20061101
  2. ASPIRIN [Concomitant]
     Indication: ANTICOAGULANT THERAPY
     Route: 048
     Dates: start: 19660101

REACTIONS (8)
  - BURNING SENSATION [None]
  - CEREBROVASCULAR ACCIDENT [None]
  - GASTRIC ULCER [None]
  - LIP SWELLING [None]
  - REFLUX OESOPHAGITIS [None]
  - SWOLLEN TONGUE [None]
  - THROAT IRRITATION [None]
  - TRANSIENT ISCHAEMIC ATTACK [None]
